FAERS Safety Report 5841116-2 (Version None)
Quarter: 2008Q3

REPORT INFORMATION
  Report Type: 
  Country: None (occurrence: None)
  Receive Date: 20080807
  Receipt Date: 20080807
  Transmission Date: 20090109
  Serious: No
  Sender: FDA-Public Use
  Company Number: None

PATIENT
  Age: 25 Year
  Sex: Female
  Weight: 96.1626 kg

DRUGS (1)
  1. PREDNISONE TAB [Suspect]
     Indication: HAND-FOOT-AND-MOUTH DISEASE
     Dosage: 20 MG 2X A DAY PO
     Route: 048
     Dates: start: 20080804, end: 20080805

REACTIONS (1)
  - SLEEP DISORDER [None]
